FAERS Safety Report 8831408 (Version 1)
Quarter: 2012Q4

REPORT INFORMATION
  Report Type: 
  Country: CN (occurrence: CN)
  Receive Date: 20121009
  Receipt Date: 20121009
  Transmission Date: 20130627
  Serious: Yes (Other)
  Sender: FDA-Public Use
  Company Number: CN-WATSON-2012-16884

PATIENT
  Age: 10 Month
  Sex: Female
  Weight: 9 kg

DRUGS (4)
  1. LEVETIRACETAM (UNKNOWN) [Suspect]
     Indication: POST-TRAUMATIC EPILEPSY
     Dosage: 27.8 mg/kg, daily for maintenance
     Route: 065
  2. LEVETIRACETAM (UNKNOWN) [Suspect]
     Dosage: 18.5 mg/kg, daily
     Route: 065
  3. LEVETIRACETAM (UNKNOWN) [Suspect]
     Dosage: 13.8 mg/kg, daily
     Route: 065
  4. LEVETIRACETAM (UNKNOWN) [Suspect]
     Dosage: 9.25 mg/kg, daily
     Route: 065

REACTIONS (2)
  - Blood alkaline phosphatase increased [Recovered/Resolved]
  - Liver function test abnormal [Recovered/Resolved]
